FAERS Safety Report 9146750 (Version 3)
Quarter: 2014Q2

REPORT INFORMATION
  Report Type: Report from Study
  Country: NL (occurrence: NL)
  Receive Date: 20130307
  Receipt Date: 20140407
  Transmission Date: 20141212
  Serious: Yes (Hospitalization, Other)
  Sender: FDA-Public Use
  Company Number: PHHY2013NL021344

PATIENT
  Age: 5 Year
  Sex: Female
  Weight: 19 kg

DRUGS (3)
  1. ILARIS [Suspect]
     Indication: MUCKLE-WELLS SYNDROME
     Dosage: 35 MG, EVERY 8 WEEKS
     Route: 058
     Dates: start: 20110926
  2. ILARIS [Suspect]
     Indication: CRYOPYRIN ASSOCIATED PERIODIC SYNDROME
     Dosage: 70 MG, EVERY 8 WEEKS
     Route: 058
     Dates: start: 201201
  3. ILARIS [Suspect]
     Dosage: 70 MG, EVERY 8 WEEKS
     Route: 058
     Dates: start: 20121217

REACTIONS (7)
  - Influenza [Recovered/Resolved]
  - Pyrexia [Unknown]
  - Dyspnoea [Unknown]
  - Malaise [Unknown]
  - Cough [Unknown]
  - Haemoglobin decreased [Unknown]
  - Viral infection [Recovered/Resolved]
